FAERS Safety Report 24572145 (Version 1)
Quarter: 2024Q4

REPORT INFORMATION
  Report Type: Spontaneous
  Country: US (occurrence: None)
  Receive Date: 20241031
  Receipt Date: 20241031
  Transmission Date: 20250114
  Serious: Yes (Hospitalization)
  Sender: Public
  Company Number: None

PATIENT
  Age: 75 Year
  Sex: Male

DRUGS (1)
  1. SERTRALINE HYDROCHLORIDE [Suspect]
     Active Substance: SERTRALINE HYDROCHLORIDE
     Indication: Post-traumatic stress disorder
     Dosage: FREQUENCY : DAILY;?
     Route: 048
     Dates: end: 20240810

REACTIONS (2)
  - Inappropriate antidiuretic hormone secretion [None]
  - Adverse drug reaction [None]

NARRATIVE: CASE EVENT DATE: 20240810
